FAERS Safety Report 8078742-9 (Version None)
Quarter: 2012Q1

REPORT INFORMATION
  Report Type: 
  Country: None (occurrence: None)
  Receive Date: 20120127
  Receipt Date: 20110111
  Transmission Date: 20120608
  Serious: No
  Sender: FDA-Public Use
  Company Number: US-ABBOTT-11P-163-0696445-00

PATIENT
  Age: 36 Year
  Sex: Female

DRUGS (4)
  1. PRILOSEC [Concomitant]
     Indication: CROHN'S DISEASE
     Dosage: 40 MG 1 TAB DAILY 30 MIN BEFORE BREAKFAST IN THE MORNING
  2. HUMIRA [Suspect]
     Indication: CROHN'S DISEASE
     Dates: start: 20101223
  3. HYDROXYCHLOROQUINE SULFATE [Concomitant]
     Indication: SYSTEMIC LUPUS ERYTHEMATOSUS RASH
     Dosage: 1 TAB BID
  4. OSCAL 500 [Concomitant]
     Indication: PRODUCT USED FOR UNKNOWN INDICATION

REACTIONS (1)
  - RASH [None]
